FAERS Safety Report 9749351 (Version 6)
Quarter: 2014Q2

REPORT INFORMATION
  Report Type: Spontaneous
  Country: JP (occurrence: JP)
  Receive Date: 20131212
  Receipt Date: 20140512
  Transmission Date: 20141212
  Serious: Yes (Hospitalization)
  Sender: FDA-Public Use
  Company Number: JP-CELGENEUS-087-21880-13120497

PATIENT
  Age: 79 Year
  Sex: Female
  Weight: 62.2 kg

DRUGS (31)
  1. REVLIMID [Suspect]
     Indication: PLASMA CELL MYELOMA
     Route: 048
     Dates: start: 20120530, end: 20131028
  2. LENADEX [Suspect]
     Indication: PLASMA CELL MYELOMA
     Route: 048
     Dates: start: 20120529, end: 20130619
  3. DEXAMETHASONE [Suspect]
     Indication: PLASMA CELL MYELOMA
     Route: 041
     Dates: start: 20120530, end: 20130807
  4. ELOTUZUMAB [Suspect]
     Indication: PLASMA CELL MYELOMA
     Route: 041
     Dates: start: 20120530, end: 20131211
  5. AMARYL [Concomitant]
     Indication: PRODUCT USED FOR UNKNOWN INDICATION
     Route: 065
     Dates: start: 2003, end: 20131202
  6. TAKEPRON [Concomitant]
     Indication: PRODUCT USED FOR UNKNOWN INDICATION
     Route: 065
     Dates: start: 20090708
  7. MAGMITT [Concomitant]
     Indication: PRODUCT USED FOR UNKNOWN INDICATION
     Route: 048
     Dates: start: 20090710
  8. PANTOSIN [Concomitant]
     Indication: PRODUCT USED FOR UNKNOWN INDICATION
     Route: 048
     Dates: start: 20090710
  9. VOGLIBOSE [Concomitant]
     Indication: PRODUCT USED FOR UNKNOWN INDICATION
     Route: 065
     Dates: start: 2003
  10. MYSLEE [Concomitant]
     Indication: PRODUCT USED FOR UNKNOWN INDICATION
     Route: 048
     Dates: start: 2009
  11. OXINORM [Concomitant]
     Indication: PRODUCT USED FOR UNKNOWN INDICATION
     Route: 065
     Dates: start: 20090710
  12. ONON [Concomitant]
     Indication: PRODUCT USED FOR UNKNOWN INDICATION
     Route: 065
     Dates: start: 20120403
  13. JANUVIA [Concomitant]
     Indication: PRODUCT USED FOR UNKNOWN INDICATION
     Route: 048
     Dates: start: 20120412
  14. BAYASPIRIN [Concomitant]
     Indication: PRODUCT USED FOR UNKNOWN INDICATION
     Route: 065
     Dates: start: 20120530
  15. DIFLUCAN [Concomitant]
     Indication: PRODUCT USED FOR UNKNOWN INDICATION
     Route: 048
     Dates: start: 20120530, end: 20131224
  16. PURSENNID [Concomitant]
     Indication: PRODUCT USED FOR UNKNOWN INDICATION
     Route: 048
     Dates: start: 20120606
  17. NOVOLIN R [Concomitant]
     Indication: PRODUCT USED FOR UNKNOWN INDICATION
     Route: 065
     Dates: start: 20120530, end: 20131203
  18. ALLELOCK [Concomitant]
     Indication: PRODUCT USED FOR UNKNOWN INDICATION
     Route: 048
     Dates: start: 20131001, end: 20131202
  19. ALLELOCK [Concomitant]
     Route: 048
     Dates: start: 20131017, end: 20131224
  20. PL GRANULES [Concomitant]
     Indication: ADVERSE EVENT
     Route: 065
     Dates: start: 20130329, end: 20130402
  21. PL GRANULES [Concomitant]
     Route: 065
     Dates: start: 20130903, end: 20130907
  22. PL GRANULES [Concomitant]
     Route: 065
     Dates: start: 20131103, end: 20131105
  23. PL GRANULES [Concomitant]
     Route: 065
     Dates: start: 20140122, end: 20140128
  24. LYRICA [Concomitant]
     Indication: ADVERSE EVENT
     Route: 048
     Dates: start: 20101112, end: 20130415
  25. LYRICA [Concomitant]
     Route: 048
     Dates: start: 20130416
  26. LAXOBERON [Concomitant]
     Indication: PRODUCT USED FOR UNKNOWN INDICATION
     Route: 065
     Dates: start: 20120710, end: 20130731
  27. PRORANON [Concomitant]
     Indication: ADVERSE EVENT
     Route: 047
     Dates: start: 20130123, end: 20130916
  28. GENTACIN [Concomitant]
     Indication: ADVERSE EVENT
     Route: 065
     Dates: start: 20130806, end: 20131001
  29. ARASENA-A [Concomitant]
     Indication: ADVERSE EVENT
     Route: 065
     Dates: start: 20130928, end: 20131028
  30. INFLUENZA VACCINE [Concomitant]
     Indication: ADVERSE EVENT
     Route: 065
     Dates: start: 20131031, end: 20131031
  31. CAFFEINE [Concomitant]
     Indication: PRODUCT USED FOR UNKNOWN INDICATION
     Route: 065
     Dates: start: 20140122, end: 20140128

REACTIONS (1)
  - Diabetes mellitus [Recovered/Resolved]
